FAERS Safety Report 13733816 (Version 3)
Quarter: 2017Q3

REPORT INFORMATION
  Report Type: Spontaneous
  Country: US (occurrence: US)
  Receive Date: 20170707
  Receipt Date: 20170809
  Transmission Date: 20171127
  Serious: Yes (Hospitalization)
  Sender: FDA-Public Use
  Company Number: US-VIFOR (INTERNATIONAL) INC.-VIT-2017-07253

PATIENT
  Age: 45 Year
  Sex: Female

DRUGS (34)
  1. CEPACOL [Concomitant]
     Active Substance: BENZOCAINE
  2. BUSPIRONE HYDROCHLORIDE. [Concomitant]
     Active Substance: BUSPIRONE HYDROCHLORIDE
  3. LABETALOL HYDROCHLORIDE. [Concomitant]
     Active Substance: LABETALOL HYDROCHLORIDE
  4. TOUJEO [Concomitant]
     Active Substance: INSULIN GLARGINE
  5. COLECALCIFEROL [Concomitant]
     Active Substance: CHOLECALCIFEROL
  6. AMLODIPINE BESILATE [Concomitant]
     Active Substance: AMLODIPINE BESYLATE
  7. METAMUCIL [Concomitant]
     Active Substance: PLANTAGO SEED
  8. SUCRALFATE. [Concomitant]
     Active Substance: SUCRALFATE
  9. LOPERAMIDE HYDROCHLORIDE. [Concomitant]
     Active Substance: LOPERAMIDE HYDROCHLORIDE
  10. OMEPRAZOLE. [Concomitant]
     Active Substance: OMEPRAZOLE
  11. ROPINIROLE HYDROCHLORIDE. [Concomitant]
     Active Substance: ROPINIROLE HYDROCHLORIDE
  12. SENNA LAXATIVE [Concomitant]
     Active Substance: SENNOSIDES
  13. GLUCAGON. [Concomitant]
     Active Substance: GLUCAGON
  14. PARACETAMOL [Concomitant]
     Active Substance: ACETAMINOPHEN
  15. RENA-VITE RX [Concomitant]
     Active Substance: ASCORBIC ACID\BIOTIN\CALCIUM PANTOTHENATE\CYANOCOBALAMIN\FOLIC ACID\NIACINAMIDE\PYRIDOXINE HYDROCHLORIDE\RIBOFLAVIN\THIAMINE MONONITRATE
  16. VENTOLIN HFA [Concomitant]
     Active Substance: ALBUTEROL SULFATE
  17. VELTASSA [Suspect]
     Active Substance: PATIROMER
     Route: 048
     Dates: start: 20170512
  18. PROPYLENE GLYCOL [Concomitant]
     Active Substance: PROPYLENE GLYCOL
  19. CITALOPRAM HYDROBROMIDE. [Concomitant]
     Active Substance: CITALOPRAM HYDROBROMIDE
  20. ONDANSETRON HYDROCHLORIDE. [Concomitant]
     Active Substance: ONDANSETRON HYDROCHLORIDE
  21. SILTUSSIN SA [Concomitant]
     Active Substance: GUAIFENESIN
  22. BENZONATATE. [Concomitant]
     Active Substance: BENZONATATE
  23. CLONIDINE HYDROCHLORIDE. [Concomitant]
     Active Substance: CLONIDINE HYDROCHLORIDE
  24. SALBUTAMOL SULFATE [Concomitant]
     Active Substance: ALBUTEROL SULFATE
  25. VELTASSA [Suspect]
     Active Substance: PATIROMER
     Indication: HYPERKALAEMIA
     Route: 048
  26. ALPRAZOLAM. [Concomitant]
     Active Substance: ALPRAZOLAM
  27. ATORVASTATIN CALCIUM. [Concomitant]
     Active Substance: ATORVASTATIN CALCIUM
  28. FOLIC ACID. [Concomitant]
     Active Substance: FOLIC ACID
  29. LEVOTHYROXINE SODIUM. [Concomitant]
     Active Substance: LEVOTHYROXINE SODIUM
  30. NOVOLOG [Concomitant]
     Active Substance: INSULIN ASPART
  31. PARACETAMOL [Concomitant]
     Active Substance: ACETAMINOPHEN
  32. LORATADINE. [Concomitant]
     Active Substance: LORATADINE
  33. METOCLOPRAMIDE HYDROCHLORIDE. [Concomitant]
     Active Substance: METOCLOPRAMIDE HYDROCHLORIDE
  34. TRAZODONE HYDROCHLORIDE. [Concomitant]
     Active Substance: TRAZODONE HYDROCHLORIDE

REACTIONS (3)
  - Inappropriate schedule of drug administration [Unknown]
  - Cardiac disorder [Unknown]
  - Sepsis [Unknown]

NARRATIVE: CASE EVENT DATE: 2017
